FAERS Safety Report 7644785-X (Version None)
Quarter: 2011Q3

REPORT INFORMATION
  Report Type: 
  Country: None (occurrence: None)
  Receive Date: 20110725
  Receipt Date: 20110708
  Transmission Date: 20111222
  Serious: Yes (Life-Threatening)
  Sender: FDA-Public Use
  Company Number: JHP201100303

PATIENT
  Sex: Male

DRUGS (2)
  1. DANTRIUM [Suspect]
     Dosage: INTRAVENOUS
     Route: 042
  2. DANTRIUM [Suspect]
     Dosage: ORAL
     Route: 048
     Dates: end: 20110708

REACTIONS (1)
  - RESPIRATORY FAILURE [None]
